FAERS Safety Report 21355669 (Version 1)
Quarter: 2022Q3

REPORT INFORMATION
  Report Type: Spontaneous
  Country: US (occurrence: None)
  Receive Date: 20220919
  Receipt Date: 20220919
  Transmission Date: 20221027
  Serious: Yes (Hospitalization)
  Sender: FDA-Public Use
  Company Number: None

PATIENT
  Sex: Female

DRUGS (2)
  1. ENBREL [Suspect]
     Active Substance: ETANERCEPT
     Indication: Rheumatoid arthritis
     Dosage: 50 MG/ML ??INJECT 1 PEN UNDER THE SKIN (SUBCUTANEOUS INJECTON) ONCE A WEEK?
     Route: 058
     Dates: start: 20190814
  2. ENBREL [Suspect]
     Active Substance: ETANERCEPT
     Dosage: OTHER QUANTITY : 1 PEN;?FREQUENCY : WEEKLY;?
     Route: 058

REACTIONS (5)
  - Diverticulitis [None]
  - Therapy interrupted [None]
  - Infection [None]
  - Fatigue [None]
  - Headache [None]
